FAERS Safety Report 17068459 (Version 2)
Quarter: 2020Q2

REPORT INFORMATION
  Report Type: Spontaneous
  Country: IT (occurrence: IT)
  Receive Date: 20191123
  Receipt Date: 20200506
  Transmission Date: 20200713
  Serious: Yes (Hospitalization)
  Sender: FDA-Public Use
  Company Number: IT-ACCORD-162177

PATIENT
  Age: 85 Year
  Sex: Female

DRUGS (1)
  1. LEVETIRACETAM. [Suspect]
     Active Substance: LEVETIRACETAM
     Indication: EPILEPSY
     Route: 048
     Dates: start: 20191009, end: 20191016

REACTIONS (6)
  - Pyrexia [Unknown]
  - Brain injury [Unknown]
  - Leukopenia [Unknown]
  - Splenomegaly [Unknown]
  - Lymphoproliferative disorder [Unknown]
  - Pancytopenia [Unknown]

NARRATIVE: CASE EVENT DATE: 20191015
